FAERS Safety Report 6303474-4 (Version None)
Quarter: 2009Q3

REPORT INFORMATION
  Report Type: 
  Country: None (occurrence: None)
  Receive Date: 20090810
  Receipt Date: 20090730
  Transmission Date: 20100115
  Serious: Yes (Other)
  Sender: FDA-Public Use
  Company Number: PHEH2007US07406

PATIENT
  Sex: Male

DRUGS (1)
  1. GLEEVEC [Suspect]
     Indication: CHRONIC MYELOID LEUKAEMIA
     Dosage: 400 MG, QD
     Route: 048
     Dates: start: 20010529

REACTIONS (5)
  - ANAEMIA [None]
  - ARTHROPATHY [None]
  - LYMPHOMA [None]
  - NAUSEA [None]
  - THROMBOCYTOPENIA [None]
